FAERS Safety Report 4339993-X (Version None)
Quarter: 2004Q2

REPORT INFORMATION
  Report Type: 
  Country: None (occurrence: None)
  Receive Date: 20040416
  Receipt Date: 19991129
  Transmission Date: 20050107
  Serious: Yes (Life-Threatening, Hospitalization)
  Sender: FDA-Public Use
  Company Number: US-MERCK-99112049

PATIENT
  Age: 60 Year
  Sex: Female

DRUGS (4)
  1. [THERAPY UNSPECIFIED] [Concomitant]
     Route: 065
  2. SYNTHROID [Concomitant]
     Route: 065
  3. ZOCOR [Suspect]
     Route: 048
     Dates: start: 19980101
  4. ZOCOR [Suspect]
     Route: 048
     Dates: end: 19980101

REACTIONS (6)
  - AUTOIMMUNE HEPATITIS [None]
  - GLUCOSE TOLERANCE IMPAIRED [None]
  - HEPATIC ENCEPHALOPATHY [None]
  - HEPATIC FAILURE [None]
  - HEPATIC NECROSIS [None]
  - LIVER TRANSPLANT [None]
